FAERS Safety Report 4999969-6 (Version None)
Quarter: 2006Q2

REPORT INFORMATION
  Report Type: 
  Country: None (occurrence: None)
  Receive Date: 20060511
  Receipt Date: 20060503
  Transmission Date: 20061013
  Serious: Yes (Other)
  Sender: FDA-Public Use
  Company Number: GB-GLAXOSMITHKLINE-B0422942A

PATIENT
  Age: 49 Year
  Sex: Female
  Weight: 70 kg

DRUGS (4)
  1. BEXXAR [Suspect]
     Indication: NON-HODGKIN'S LYMPHOMA
     Dosage: 450MG SINGLE DOSE
     Route: 042
     Dates: start: 20060324
  2. IODINE I 131 TOSITUMOMAB [Suspect]
     Indication: NON-HODGKIN'S LYMPHOMA
     Dosage: 5.3MCI SINGLE DOSE
     Route: 042
     Dates: start: 20060324
  3. BEXXAR [Suspect]
     Dosage: 450MG SINGLE DOSE
     Route: 042
     Dates: start: 20060331
  4. IODINE I 131 TOSITUMOMAB [Suspect]
     Dosage: 108.8MCI SINGLE DOSE
     Route: 042
     Dates: start: 20060331

REACTIONS (1)
  - THROMBOCYTOPENIA [None]
